FAERS Safety Report 8053489-3 (Version None)
Quarter: 2012Q1

REPORT INFORMATION
  Report Type: 
  Country: None (occurrence: None)
  Receive Date: 20120118
  Receipt Date: 20120111
  Transmission Date: 20120608
  Serious: Yes (Hospitalization, Other)
  Sender: FDA-Public Use
  Company Number: GR-ABBOTT-12P-066-0892656-00

PATIENT
  Sex: Male
  Weight: 94 kg

DRUGS (9)
  1. ZOLOFT [Concomitant]
     Indication: LUNG NEOPLASM MALIGNANT
     Route: 048
     Dates: start: 20090101
  2. INSPRA [Concomitant]
     Indication: HYPERTENSION
     Dates: start: 20100101
  3. FILICINE [Concomitant]
     Indication: LUNG NEOPLASM MALIGNANT
     Route: 048
     Dates: start: 20100101
  4. ZANTAC [Concomitant]
     Indication: PROPHYLAXIS AGAINST GASTROINTESTINAL ULCER
     Route: 048
     Dates: start: 20110101
  5. NEURONTIN [Concomitant]
     Indication: LUNG NEOPLASM MALIGNANT
     Dates: start: 20090101
  6. ZEMPLAR [Suspect]
     Indication: HYPOPARATHYROIDISM SECONDARY
     Dosage: 3 MG/WEEK
     Route: 048
     Dates: start: 20100801
  7. SINTROM [Concomitant]
     Indication: AORTIC VALVE REPLACEMENT
     Dosage: 1/4 DAILY
     Route: 048
     Dates: start: 20090101
  8. ALLOPURINOL [Concomitant]
     Indication: HYPERURICAEMIA
     Route: 048
     Dates: start: 20100101
  9. LOPRESSOR [Concomitant]
     Indication: HYPERTENSION
     Dosage: 1/4 DAILY
     Route: 048
     Dates: start: 20090101

REACTIONS (6)
  - DYSPNOEA [None]
  - METASTASES TO CENTRAL NERVOUS SYSTEM [None]
  - PLEURAL EFFUSION [None]
  - HYPOVENTILATION [None]
  - ASTHENIA [None]
  - LUNG NEOPLASM [None]
